FAERS Safety Report 8493834-8 (Version None)
Quarter: 2012Q3

REPORT INFORMATION
  Report Type: 
  Country: None (occurrence: None)
  Receive Date: 20120706
  Receipt Date: 20120702
  Transmission Date: 20120928
  Serious: Yes (Congenital Anomaly, Other)
  Sender: FDA-Public Use
  Company Number: PHHY2012IN056998

PATIENT
  Age: 11 Month
  Sex: Male

DRUGS (2)
  1. PENIDURE [Suspect]
     Route: 064
  2. WARFARIN SODIUM [Suspect]
     Route: 064

REACTIONS (16)
  - PREMATURE BABY [None]
  - FOETAL WARFARIN SYNDROME [None]
  - FOETAL GROWTH RESTRICTION [None]
  - FOETAL EXPOSURE DURING PREGNANCY [None]
  - POLYDACTYLY [None]
  - ONYCHOCLASIS [None]
  - BRACHYCEPHALY [None]
  - BLINDNESS [None]
  - OPTIC ATROPHY [None]
  - HYPOXIC-ISCHAEMIC ENCEPHALOPATHY [None]
  - METAPHYSEAL DYSPLASIA [None]
  - CONGENITAL NOSE MALFORMATION [None]
  - EPIPHYSEAL DISORDER [None]
  - PHARYNGEAL DISORDER [None]
  - PECTUS EXCAVATUM [None]
  - FINGER DEFORMITY [None]
